FAERS Safety Report 25934615 (Version 2)
Quarter: 2025Q4

REPORT INFORMATION
  Report Type: Spontaneous
  Country: JP (occurrence: JP)
  Receive Date: 20251017
  Receipt Date: 20251202
  Transmission Date: 20260118
  Serious: Yes (Other)
  Sender: MYLAN
  Company Number: JP-VIATRISJAPAN-2025M1086507AA

PATIENT
  Age: 7 Decade
  Sex: Female

DRUGS (4)
  1. SOLANAX [Suspect]
     Active Substance: ALPRAZOLAM
     Indication: Insomnia
     Dosage: UNK UNK, PRN
  2. SOLANAX [Suspect]
     Active Substance: ALPRAZOLAM
     Indication: Pain
  3. CLONAZEPAM [Concomitant]
     Active Substance: CLONAZEPAM
     Indication: Panic reaction
  4. ARIPIPRAZOLE [Concomitant]
     Active Substance: ARIPIPRAZOLE
     Indication: Panic reaction
     Dosage: UNK

REACTIONS (1)
  - Suicide attempt [Unknown]
